FAERS Safety Report 7246616-9 (Version None)
Quarter: 2011Q1

REPORT INFORMATION
  Report Type: 
  Country: None (occurrence: None)
  Receive Date: 20110127
  Receipt Date: 20110120
  Transmission Date: 20110831
  Serious: No
  Sender: FDA-Public Use
  Company Number: US-BIOGENIDEC-2011BI002118

PATIENT
  Age: 55 Year
  Sex: Female

DRUGS (1)
  1. TYSABRI [Suspect]
     Indication: MULTIPLE SCLEROSIS
     Route: 042
     Dates: start: 20080313

REACTIONS (13)
  - STRESS [None]
  - RHINORRHOEA [None]
  - BRONCHITIS [None]
  - HYPOAESTHESIA [None]
  - BACK INJURY [None]
  - COUGH [None]
  - LACERATION [None]
  - PYREXIA [None]
  - VERTIGO [None]
  - BEDRIDDEN [None]
  - PHARYNGITIS STREPTOCOCCAL [None]
  - EAR INFECTION [None]
  - OROPHARYNGEAL PAIN [None]
